FAERS Safety Report 4706517-4 (Version None)
Quarter: 2005Q3

REPORT INFORMATION
  Report Type: 
  Country: None (occurrence: None)
  Receive Date: 20050705
  Receipt Date: 20050531
  Transmission Date: 20060218
  Serious: Yes (Other)
  Sender: FDA-Public Use
  Company Number: CA-GLAXOSMITHKLINE-A0564884A

PATIENT
  Age: 27 Year
  Sex: Female

DRUGS (7)
  1. PAROXETINE HCL [Suspect]
     Indication: DRUG USE FOR UNKNOWN INDICATION
     Route: 048
  2. DEXTROAMPHETAMINE [Suspect]
     Indication: DRUG USE FOR UNKNOWN INDICATION
     Route: 065
  3. AMITRIPTYLINE HCL [Concomitant]
  4. DIAZEPAM [Concomitant]
  5. GABAPENTIN [Concomitant]
  6. HYDROXYZINE [Concomitant]
  7. METHYLPHENIDATE HCL [Concomitant]

REACTIONS (6)
  - DRUG DEPENDENCE [None]
  - DRUG WITHDRAWAL SYNDROME [None]
  - MUSCLE SPASMS [None]
  - NEUROTOXICITY [None]
  - PAIN [None]
  - SPEECH DISORDER [None]
